FAERS Safety Report 15592362 (Version 1)
Quarter: 2018Q4

REPORT INFORMATION
  Report Type: Spontaneous
  Country: FR (occurrence: FR)
  Receive Date: 20181106
  Receipt Date: 20181106
  Transmission Date: 20190205
  Serious: Yes (Other)
  Sender: FDA-Public Use
  Company Number: FR-ALLERGAN-1851840US

PATIENT
  Age: 76 Year
  Sex: Male

DRUGS (1)
  1. TRIPTORELIN PAMOATE - BP [Suspect]
     Active Substance: TRIPTORELIN PAMOATE
     Indication: PROSTATE CANCER
     Dosage: 1 DF, Q3MONTHS
     Route: 058
     Dates: start: 20170511

REACTIONS (1)
  - Rectal haemorrhage [Recovered/Resolved]

NARRATIVE: CASE EVENT DATE: 20180911
